FAERS Safety Report 6382006-9 (Version None)
Quarter: 2009Q3

REPORT INFORMATION
  Report Type: 
  Country: None (occurrence: None)
  Receive Date: 20090930
  Receipt Date: 20090918
  Transmission Date: 20100115
  Serious: Yes (Congenital Anomaly)
  Sender: FDA-Public Use
  Company Number: FR-BAYER-200933522GPV

PATIENT

DRUGS (2)
  1. YAZ [Suspect]
     Route: 064
  2. UNKNOWN CONCOMITANT TREATMENT (NOS) [Concomitant]
     Route: 064

REACTIONS (1)
  - FOETAL MALFORMATION [None]
